FAERS Safety Report 7787374 (Version 2)
Quarter: 2013Q1

REPORT INFORMATION
  Report Type: Report from Study
  Country: US (occurrence: US)
  Receive Date: 20110130
  Receipt Date: 20130129
  Transmission Date: 20140127
  Serious: No
  Sender: FDA-Public Use
  Company Number: US-ABBOTT-10P-163-0660869-00

PATIENT
  Age: 57 Year
  Sex: Female
  Weight: 70.82 kg

DRUGS (20)
  1. HUMIRA 40 MG/0.8 ML PEN [Suspect]
     Indication: ANKYLOSING SPONDYLITIS
     Route: 058
     Dates: start: 20100625
  2. HUMIRA 40 MG/0.8 ML PEN [Suspect]
     Indication: UVEITIS
  3. HUMIRA 40 MG/0.8 ML PEN [Suspect]
     Indication: LEUKOCYTE ANTIGEN B-27 POSITIVE
  4. PROVIGIAL IN CPAP MACHINE [Concomitant]
     Indication: PRODUCT USED FOR UNKNOWN INDICATION
     Dosage: AT NIGHT, INCREASE CPAP PRESSURE FROM 7 TO 9
  5. AVEENO CREAM WITH 1% HYDROCORTISONE [Concomitant]
     Indication: PRURITUS
  6. CRESTOR [Concomitant]
     Indication: BLOOD CHOLESTEROL INCREASED
  7. DIOVAN [Concomitant]
     Indication: HYPERTENSION
     Dosage: 160/25MG, ONCE DAILY
  8. CLONAZEPAM [Concomitant]
     Indication: ANXIETY
  9. DEXILANT [Concomitant]
     Indication: GASTROOESOPHAGEAL REFLUX DISEASE
  10. HYDROCODONE [Concomitant]
     Indication: PAIN
  11. BENADRYL [Concomitant]
     Indication: PRURITUS
  12. PRISTIQ [Concomitant]
     Indication: DEPRESSION
  13. MECLEZINE [Concomitant]
     Indication: DIZZINESS
  14. SOOTH XP [Concomitant]
     Indication: EYE IRRITATION
  15. CARAFATE [Concomitant]
     Indication: ABDOMINAL DISCOMFORT
     Dosage: LIQUID
  16. BYSTOLIC [Concomitant]
     Indication: PRODUCT USED FOR UNKNOWN INDICATION
  17. ACIPHEX [Concomitant]
     Indication: PRODUCT USED FOR UNKNOWN INDICATION
  18. CALCIUM + VITAMIN D [Concomitant]
     Indication: PRODUCT USED FOR UNKNOWN INDICATION
     Dates: start: 20120522
  19. MAGNESIUM [Concomitant]
     Indication: PRODUCT USED FOR UNKNOWN INDICATION
     Dates: start: 20120522
  20. SENOKOT [Concomitant]
     Indication: PRODUCT USED FOR UNKNOWN INDICATION
     Dates: start: 20120522

REACTIONS (18)
  - Fatigue [Not Recovered/Not Resolved]
  - Somnolence [Not Recovered/Not Resolved]
  - Pain [Unknown]
  - Visual acuity reduced [Unknown]
  - Rash [Unknown]
  - Confusional state [Unknown]
  - Mental impairment [Not Recovered/Not Resolved]
  - Mental impairment [Not Recovered/Not Resolved]
  - Migraine [Not Recovered/Not Resolved]
  - Migraine with aura [Unknown]
  - Dizziness [Unknown]
  - Unevaluable event [Unknown]
  - Paraesthesia [Unknown]
  - Burning sensation [Unknown]
  - Weight decreased [Unknown]
  - Feeling abnormal [Unknown]
  - Disturbance in attention [Unknown]
  - Disturbance in attention [Unknown]
